FAERS Safety Report 6434644-2 (Version None)
Quarter: 2009Q4

REPORT INFORMATION
  Report Type: 
  Country: None (occurrence: None)
  Receive Date: 20091110
  Receipt Date: 20091104
  Transmission Date: 20100525
  Serious: Yes (Death, Hospitalization)
  Sender: FDA-Public Use
  Company Number: B0603072A

PATIENT
  Age: 28 Year
  Sex: Female

DRUGS (1)
  1. AUGMENTIN [Suspect]
     Indication: MASTITIS
     Route: 065
     Dates: start: 20091028, end: 20091028

REACTIONS (4)
  - ANAPHYLACTIC SHOCK [None]
  - BLOOD PRESSURE DECREASED [None]
  - DEATH [None]
  - RASH GENERALISED [None]
